FAERS Safety Report 12233680 (Version 2)
Quarter: 2016Q2

REPORT INFORMATION
  Report Type: Spontaneous
  Country: US (occurrence: US)
  Receive Date: 20160404
  Receipt Date: 20160415
  Transmission Date: 20160815
  Serious: Yes (Hospitalization)
  Sender: FDA-Public Use
  Company Number: US-BAYER-2016-058668

PATIENT
  Age: 81 Year
  Sex: Male

DRUGS (1)
  1. ALEVE [Suspect]
     Active Substance: NAPROXEN SODIUM
     Dosage: 1 DF, QD
     Route: 048

REACTIONS (4)
  - Gastric ulcer [None]
  - Product use issue [None]
  - Red blood cell count decreased [None]
  - Circulatory collapse [None]

NARRATIVE: CASE EVENT DATE: 20160318
